FAERS Safety Report 24037621 (Version 2)
Quarter: 2024Q3

REPORT INFORMATION
  Report Type: Report from Study
  Country: US (occurrence: US)
  Receive Date: 20240702
  Receipt Date: 20240715
  Transmission Date: 20241017
  Serious: Yes (Hospitalization)
  Sender: JOHNSON AND JOHNSON
  Company Number: US-JNJFOC-20240587231

PATIENT
  Age: 71 Year
  Sex: Female
  Weight: 60.5 kg

DRUGS (4)
  1. SELEXIPAG [Suspect]
     Active Substance: SELEXIPAG
     Indication: Pulmonary hypertension
     Route: 048
  2. ADEMPAS [Concomitant]
     Active Substance: RIOCIGUAT
     Indication: Product used for unknown indication
  3. OPSUMIT [Concomitant]
     Active Substance: MACITENTAN
     Route: 048
  4. SOTATERCEPT [Concomitant]
     Active Substance: SOTATERCEPT

REACTIONS (5)
  - Sepsis [Unknown]
  - Dyspnoea [Unknown]
  - Cellulitis [Unknown]
  - Haemorrhagic diathesis [Unknown]
  - Headache [Unknown]

NARRATIVE: CASE EVENT DATE: 20240617
